FAERS Safety Report 18255319 (Version 1)
Quarter: 2020Q3

REPORT INFORMATION
  Report Type: Spontaneous
  Country: US (occurrence: US)
  Receive Date: 20200911
  Receipt Date: 20200911
  Transmission Date: 20201103
  Serious: No
  Sender: FDA-Public Use
  Company Number: US-ASTRAZENECA-2020SF15848

PATIENT

DRUGS (1)
  1. PRILOSEC OTC [Suspect]
     Active Substance: OMEPRAZOLE MAGNESIUM
     Indication: HYPERCHLORHYDRIA
     Dosage: UNK, AS NEEDED
     Route: 048
     Dates: start: 201911

REACTIONS (3)
  - Bladder disorder [Unknown]
  - Nervous system disorder [Unknown]
  - Product use in unapproved indication [Unknown]
